FAERS Safety Report 23068193 (Version 1)
Quarter: 2023Q4

REPORT INFORMATION
  Report Type: Spontaneous
  Country: US (occurrence: US)
  Receive Date: 20231016
  Receipt Date: 20231016
  Transmission Date: 20240109
  Serious: Yes (Hospitalization, Other)
  Sender: FDA-Public Use
  Company Number: US-BAYER-2023A139667

PATIENT
  Sex: Female

DRUGS (5)
  1. ADEMPAS [Suspect]
     Active Substance: RIOCIGUAT
     Indication: Pulmonary arterial hypertension
     Dosage: 2.5 MG
  2. AMBRISENTAN [Suspect]
     Active Substance: AMBRISENTAN
     Indication: Pulmonary arterial hypertension
     Dosage: 10 MG
     Dates: start: 20160804
  3. AMBRISENTAN [Suspect]
     Active Substance: AMBRISENTAN
     Indication: Pulmonary arterial hypertension
     Dosage: 10 MG, QD
     Dates: start: 20191009
  4. REMODULIN [Concomitant]
     Active Substance: TREPROSTINIL
  5. AMOXICILLIN [Concomitant]
     Active Substance: AMOXICILLIN

REACTIONS (6)
  - Pneumonia [None]
  - Haemoptysis [None]
  - Vomiting [None]
  - Hypotension [None]
  - Chest discomfort [None]
  - Product dose omission issue [None]

NARRATIVE: CASE EVENT DATE: 20230728
